FAERS Safety Report 4390594-7 (Version None)
Quarter: 2004Q2

REPORT INFORMATION
  Report Type: 
  Country: None (occurrence: None)
  Receive Date: 20040630
  Receipt Date: 20040621
  Transmission Date: 20050107
  Serious: Yes (Life-Threatening)
  Sender: FDA-Public Use
  Company Number: 200410341BYL

PATIENT
  Age: 84 Year
  Sex: Female
  Weight: 56 kg

DRUGS (10)
  1. ASPIRIN [Suspect]
     Indication: THROMBOSIS PROPHYLAXIS
     Dosage: 1000 MG, QD, ORAL
     Route: 048
     Dates: start: 20040426, end: 20040614
  2. PANALDINE (TICLOPIDINE HYDROCHLORIDE) [Suspect]
     Indication: THROMBOSIS PROPHYLAXIS
     Dosage: 100 MG, BID, ORAL
     Route: 048
     Dates: start: 20040426, end: 20040531
  3. BLOPRESS (CANDESARTAN CILEXETIL) [Suspect]
     Indication: HYPERTENSION
     Dosage: 2 MG, QD, ORAL
     Route: 048
     Dates: start: 20040426, end: 20040610
  4. ASPENON (APRINDINE HYDROCHLORIDE) [Suspect]
     Indication: ARRHYTHMIA
     Dosage: 20 MG, BID, ORAL
     Route: 048
     Dates: start: 20040428, end: 20040611
  5. LASIX [Suspect]
     Indication: DIURETIC THERAPY
     Dosage: 40 MG, QD, ORAL
     Route: 048
     Dates: start: 20040430, end: 20040614
  6. MODACIN [Concomitant]
  7. BROACT [Concomitant]
  8. NYSTATIN [Concomitant]
  9. POLYMYXIN B SULFATE [Concomitant]
  10. FUNGUARD [Concomitant]

REACTIONS (1)
  - WHITE BLOOD CELL COUNT DECREASED [None]
